FAERS Safety Report 23641456 (Version 1)
Quarter: 2024Q1

REPORT INFORMATION
  Report Type: Spontaneous
  Country: US (occurrence: US)
  Receive Date: 20240318
  Receipt Date: 20240318
  Transmission Date: 20240409
  Serious: Yes (Death, Other)
  Sender: FDA-Public Use
  Company Number: US-SA-SAC20240315000522

PATIENT
  Age: 91 Year
  Sex: Female

DRUGS (1)
  1. FERRLECIT [Suspect]
     Active Substance: SODIUM FERRIC GLUCONATE COMPLEX
     Indication: Iron deficiency anaemia
     Dosage: 250 MG
     Route: 041
     Dates: start: 20240312, end: 20240312

REACTIONS (5)
  - Acute myocardial infarction [Fatal]
  - Confusional state [Unknown]
  - Somnolence [Unknown]
  - Cold sweat [Unknown]
  - Hyperhidrosis [Unknown]

NARRATIVE: CASE EVENT DATE: 20240301
